FAERS Safety Report 10015783 (Version 3)
Quarter: 2015Q1

REPORT INFORMATION
  Report Type: Spontaneous
  Country: US (occurrence: US)
  Receive Date: 20140317
  Receipt Date: 20150317
  Transmission Date: 20150720
  Serious: Yes (Hospitalization, Other)
  Sender: FDA-Public Use
  Company Number: US-BAYER-2014-040357

PATIENT
  Age: 28 Year
  Sex: Female
  Weight: 72.56 kg

DRUGS (6)
  1. RISPERDAL [Concomitant]
     Active Substance: RISPERIDONE
  2. MIRENA [Suspect]
     Active Substance: LEVONORGESTREL
     Indication: CONTRACEPTION
     Dosage: 20 MCG/24HR, CONT
     Route: 015
     Dates: start: 20100811, end: 20110310
  3. XANAX [Concomitant]
     Active Substance: ALPRAZOLAM
  4. WELLBUTRIN [Concomitant]
     Active Substance: BUPROPION HYDROCHLORIDE
  5. CARBAMAZEPINE. [Concomitant]
     Active Substance: CARBAMAZEPINE
  6. VALTREX [Concomitant]
     Active Substance: VALACYCLOVIR HYDROCHLORIDE

REACTIONS (9)
  - Uterine perforation [None]
  - Injury [None]
  - Medical device discomfort [None]
  - Emotional distress [None]
  - Device issue [None]
  - Procedural pain [None]
  - Scar [None]
  - Pain [None]
  - Genital haemorrhage [None]

NARRATIVE: CASE EVENT DATE: 201008
